FAERS Safety Report 9659663 (Version 1)
Quarter: 2013Q4

REPORT INFORMATION
  Report Type: Spontaneous
  Country: US (occurrence: None)
  Receive Date: 20131029
  Receipt Date: 20131029
  Transmission Date: 20140711
  Serious: Yes (Other)
  Sender: FDA-Public Use
  Company Number: NSR_01303_2013

PATIENT
  Sex: Female
  Weight: 59.88 kg

DRUGS (3)
  1. PROPRANOLOL [Suspect]
     Indication: RADIOACTIVE IODINE THERAPY
     Route: 048
     Dates: start: 20131009, end: 20131010
  2. OMEPRAZOLE [Concomitant]
  3. SINGULAR [Concomitant]

REACTIONS (6)
  - Asthenia [None]
  - Chest discomfort [None]
  - Paraesthesia [None]
  - Muscle twitching [None]
  - Eye disorder [None]
  - Unevaluable event [None]
